FAERS Safety Report 15273072 (Version 1)
Quarter: 2018Q3

REPORT INFORMATION
  Report Type: Spontaneous
  Country: US (occurrence: US)
  Receive Date: 20180813
  Receipt Date: 20180813
  Transmission Date: 20181010
  Serious: No
  Sender: FDA-Public Use
  Company Number: US-PURDUE-USA-2018-0144091

PATIENT
  Sex: Female

DRUGS (4)
  1. BUTRANS [Suspect]
     Active Substance: BUPRENORPHINE
     Indication: SCOLIOSIS
  2. BUTRANS [Suspect]
     Active Substance: BUPRENORPHINE
     Indication: SCIATICA
  3. BUTRANS [Suspect]
     Active Substance: BUPRENORPHINE
     Indication: OSTEOARTHRITIS
     Dosage: 20 MCG/HR, WEEKLY
     Route: 062
     Dates: start: 2016
  4. BUTRANS [Suspect]
     Active Substance: BUPRENORPHINE
     Indication: EHLERS-DANLOS SYNDROME

REACTIONS (6)
  - Application site discharge [Unknown]
  - Application site pruritus [Not Recovered/Not Resolved]
  - Application site exfoliation [Not Recovered/Not Resolved]
  - Application site reaction [Unknown]
  - Application site vesicles [Not Recovered/Not Resolved]
  - Application site erythema [Unknown]

NARRATIVE: CASE EVENT DATE: 2016
